FAERS Safety Report 10267761 (Version 1)
Quarter: 2014Q2

REPORT INFORMATION
  Report Type: Spontaneous
  Country: CA (occurrence: CA)
  Receive Date: 20140630
  Receipt Date: 20140630
  Transmission Date: 20141212
  Serious: Yes (Other)
  Sender: FDA-Public Use
  Company Number: PHHY2014CA079848

PATIENT
  Sex: Female

DRUGS (1)
  1. ESTALIS [Suspect]
     Indication: MENOPAUSAL SYMPTOMS
     Dosage: UNK UKN, UNK
     Route: 062

REACTIONS (3)
  - Multiple sclerosis relapse [Unknown]
  - Application site irritation [Unknown]
  - Hypersensitivity [Unknown]
